FAERS Safety Report 10763238 (Version 11)
Quarter: 2016Q2

REPORT INFORMATION
  Report Type: Report from Study
  Country: AR (occurrence: AR)
  Receive Date: 20150204
  Receipt Date: 20160509
  Transmission Date: 20160815
  Serious: Yes (Disabling, Other)
  Sender: FDA-Public Use
  Company Number: PHHY2014AR151910

PATIENT
  Sex: Female

DRUGS (8)
  1. LUCENTIS [Suspect]
     Active Substance: RANIBIZUMAB
     Indication: AGE-RELATED MACULAR DEGENERATION
     Dosage: (RIGHT EYE)
     Route: 031
     Dates: start: 201402
  2. LUCENTIS [Suspect]
     Active Substance: RANIBIZUMAB
     Dosage: (RIGHT EYE)
     Route: 031
     Dates: start: 20150603
  3. LUCENTIS [Suspect]
     Active Substance: RANIBIZUMAB
     Dosage: (RIGHT EYE)
     Route: 031
     Dates: start: 20150702, end: 20150702
  4. LUCENTIS [Suspect]
     Active Substance: RANIBIZUMAB
     Dosage: (RIGHT EYE)
     Route: 031
     Dates: start: 201504
  5. LUCENTIS [Suspect]
     Active Substance: RANIBIZUMAB
     Dosage: (RIGHT EYE)
     Route: 031
     Dates: start: 201505
  6. LUCENTIS [Suspect]
     Active Substance: RANIBIZUMAB
     Indication: MACULOPATHY
     Dosage: (RIGHT EYE)
     Route: 031
     Dates: start: 201503
  7. TRAMADOL/PARACETAMOL [Suspect]
     Active Substance: ACETAMINOPHEN\TRAMADOL
     Indication: BONE PAIN
     Route: 065
  8. EXFORGE [Suspect]
     Active Substance: AMLODIPINE BESYLATE\VALSARTAN
     Indication: BLOOD PRESSURE INCREASED
     Dosage: 1 DF, QD
     Route: 048

REACTIONS (15)
  - Chromatopsia [Unknown]
  - Visual impairment [Unknown]
  - Macular oedema [Unknown]
  - Spinal pain [Not Recovered/Not Resolved]
  - Vision blurred [Unknown]
  - Intervertebral disc protrusion [Unknown]
  - Feeling abnormal [Unknown]
  - Pain [Unknown]
  - Visual acuity reduced [Not Recovered/Not Resolved]
  - Spinal compression fracture [Not Recovered/Not Resolved]
  - Gait disturbance [Not Recovered/Not Resolved]
  - Malaise [Unknown]
  - Age-related macular degeneration [Unknown]
  - Fear [Unknown]
  - Restlessness [Unknown]

NARRATIVE: CASE EVENT DATE: 2014
